FAERS Safety Report 7221075-0 (Version None)
Quarter: 2011Q1

REPORT INFORMATION
  Report Type: 
  Country: None (occurrence: None)
  Receive Date: 20110112
  Receipt Date: 20110106
  Transmission Date: 20110831
  Serious: No
  Sender: FDA-Public Use
  Company Number: US-PFIZER INC-2011004777

PATIENT
  Age: 66 Year
  Sex: Male

DRUGS (5)
  1. HUMALOG [Concomitant]
     Dosage: UNK
  2. LANTUS [Concomitant]
     Dosage: UNK
  3. AMLODIPINE [Concomitant]
     Dosage: UNK
  4. LIPITOR [Suspect]
     Dosage: UNK
  5. BENICAR [Concomitant]
     Dosage: UNK

REACTIONS (3)
  - BACK PAIN [None]
  - MYALGIA [None]
  - MALAISE [None]
